FAERS Safety Report 23122726 (Version 3)
Quarter: 2024Q4

REPORT INFORMATION
  Report Type: Spontaneous
  Country: US (occurrence: US)
  Receive Date: 20231030
  Receipt Date: 20241106
  Transmission Date: 20250115
  Serious: No
  Sender: UCB
  Company Number: US-UCBSA-2023029738

PATIENT
  Age: 17 Year
  Sex: Male

DRUGS (6)
  1. LEVETIRACETAM [Suspect]
     Active Substance: LEVETIRACETAM
     Indication: Partial seizures
     Dosage: UNK
  2. LACOSAMIDE [Suspect]
     Active Substance: LACOSAMIDE
     Indication: Partial seizures
     Dosage: UNK
  3. LAMOTRIGINE [Suspect]
     Active Substance: LAMOTRIGINE
     Indication: Partial seizures
     Dosage: UNK
  4. CLONAZEPAM [Suspect]
     Active Substance: CLONAZEPAM
     Indication: Partial seizures
     Dosage: UNK
  5. PREGABALIN [Suspect]
     Active Substance: PREGABALIN
     Indication: Partial seizures
     Dosage: UNK
  6. VALPROATE [Suspect]
     Active Substance: VALPROIC ACID
     Indication: Partial seizures
     Dosage: UNK

REACTIONS (1)
  - Multiple-drug resistance [Unknown]
